FAERS Safety Report 21731227 (Version 1)
Quarter: 2022Q4

REPORT INFORMATION
  Report Type: Report from Study
  Country: PR (occurrence: PR)
  Receive Date: 20221215
  Receipt Date: 20221215
  Transmission Date: 20230112
  Serious: No
  Sender: FDA-Public Use
  Company Number: PR-ABBVIE-22K-131-4247220-00

PATIENT
  Age: 62 Year
  Sex: Male
  Weight: 76.657 kg

DRUGS (20)
  1. HUMIRA [Suspect]
     Active Substance: ADALIMUMAB
     Indication: Rheumatoid arthritis
     Dosage: 40MG/0.4ML
     Route: 058
     Dates: start: 2018
  2. HUMIRA [Suspect]
     Active Substance: ADALIMUMAB
  3. HUMIRA [Suspect]
     Active Substance: ADALIMUMAB
     Dosage: 40MG/0.4ML
     Route: 058
     Dates: start: 2013, end: 2018
  4. VITAMIN D3 [Concomitant]
     Active Substance: CHOLECALCIFEROL
     Indication: Supplementation therapy
     Dosage: (VITAMIN D3) - FORM STRENGTH: 14000MG
     Route: 048
     Dates: start: 201808
  5. ELASOMERAN [Concomitant]
     Active Substance: ELASOMERAN
     Indication: COVID-19 immunisation
     Dosage: 3RD DOSE
     Route: 030
     Dates: start: 20211221, end: 20211221
  6. ELASOMERAN [Concomitant]
     Active Substance: ELASOMERAN
     Indication: COVID-19 immunisation
     Dosage: 2ND DOSE
     Route: 030
     Dates: start: 20210629, end: 20210629
  7. ELASOMERAN [Concomitant]
     Active Substance: ELASOMERAN
     Indication: COVID-19 immunisation
     Dosage: 1ST DOSE
     Route: 030
     Dates: start: 20210526, end: 20210526
  8. METHOTREXATE [Concomitant]
     Active Substance: METHOTREXATE
     Indication: Rheumatoid arthritis
     Dosage: FORM STRENGTH: 2.5MG
     Route: 048
     Dates: start: 201312
  9. CLARITIN [Suspect]
     Active Substance: LORATADINE
     Indication: Product used for unknown indication
     Route: 065
  10. NEURONTIN [Concomitant]
     Active Substance: GABAPENTIN
     Indication: Pain management
     Dosage: FORM STRENGTH: 100MG
     Route: 048
     Dates: start: 201805
  11. MODERNA COVID-19 VACCINE [Concomitant]
     Active Substance: ELASOMERAN
     Indication: COVID-19 immunisation
     Dosage: ONCE,1ST DOSE
     Route: 030
     Dates: start: 20210526, end: 20210526
  12. MODERNA COVID-19 VACCINE [Concomitant]
     Active Substance: ELASOMERAN
     Indication: COVID-19 immunisation
     Dosage: ONCE, 2ND DOSE
     Route: 030
     Dates: start: 20210629, end: 20210629
  13. MODERNA COVID-19 VACCINE [Concomitant]
     Active Substance: ELASOMERAN
     Indication: COVID-19 immunisation
     Dosage: ONCE,3RD DOSE
     Route: 030
     Dates: start: 202112, end: 202112
  14. LIPITOR [Concomitant]
     Active Substance: ATORVASTATIN CALCIUM
     Indication: Blood cholesterol abnormal
     Dosage: FORM STRENGTH: 10MG
     Route: 048
     Dates: start: 1984
  15. FOLIC ACID [Concomitant]
     Active Substance: FOLIC ACID
     Indication: Supplementation therapy
     Dosage: FORM STRENGTH: 1MG
     Route: 048
     Dates: start: 201312
  16. VITAMIN D [Concomitant]
     Active Substance: VITAMIN D NOS
     Indication: Vitamin D deficiency
     Route: 048
     Dates: start: 201808
  17. BACLOFEN [Concomitant]
     Active Substance: BACLOFEN
     Indication: Pain management
     Dosage: FORM STRENGTH: 10MG
     Route: 048
     Dates: start: 201808
  18. GLUCOSAMINE + CHONDORITIN [Concomitant]
     Indication: Analgesic therapy
     Dosage: FORM STRENGTH: 1500MG
     Route: 048
     Dates: start: 201312
  19. LOPID [Concomitant]
     Active Substance: GEMFIBROZIL
     Indication: Blood triglycerides abnormal
     Dosage: FORM STRENGTH: 600MG?START DATE TEXT: 38 YEARS AGO
     Route: 048
     Dates: start: 201705
  20. AMBIEN [Concomitant]
     Active Substance: ZOLPIDEM TARTRATE
     Indication: Sleep disorder
     Dosage: FORM STRENGTH: 10MG
     Route: 048
     Dates: start: 2000

REACTIONS (3)
  - Osteoarthritis [Not Recovered/Not Resolved]
  - Multiple allergies [Not Recovered/Not Resolved]
  - Somnolence [Unknown]

NARRATIVE: CASE EVENT DATE: 20190101
